FAERS Safety Report 4330329-7 (Version None)
Quarter: 2004Q1

REPORT INFORMATION
  Report Type: 
  Country: None (occurrence: None)
  Receive Date: 20040329
  Receipt Date: 20040316
  Transmission Date: 20041129
  Serious: Yes (Other)
  Sender: FDA-Public Use
  Company Number: 2004018574

PATIENT
  Age: 79 Year
  Sex: Male

DRUGS (4)
  1. NORVASC [Suspect]
     Indication: ILL-DEFINED DISORDER
     Dosage: 15 MG (DAILY), ORAL
     Route: 048
  2. CANDESARTAN CILEXETIL (CANDESARTAN CILEXETIL) [Suspect]
     Indication: ILL-DEFINED DISORDER
     Dosage: 10 MG (DAILY), ORAL
     Route: 048
  3. CARVEDILOL [Concomitant]
  4. DOXAZOSIN MESYLATE [Concomitant]

REACTIONS (4)
  - GENERALISED OEDEMA [None]
  - PLEURAL EFFUSION [None]
  - RENAL IMPAIRMENT [None]
  - WEIGHT INCREASED [None]
